FAERS Safety Report 9011618 (Version 3)
Quarter: 2013Q2

REPORT INFORMATION
  Report Type: Report from Study
  Country: US (occurrence: BR)
  Receive Date: 20130108
  Receipt Date: 20130415
  Transmission Date: 20140414
  Serious: Yes (Congenital Anomaly, Other)
  Sender: FDA-Public Use
  Company Number: US-GILEAD-2013-0067369

PATIENT
  Sex: Female

DRUGS (2)
  1. EMTRICITABINE/TENOFOVIR DISOPROXIL FUMARATE [Suspect]
     Indication: HIV INFECTION
     Dosage: 300 MG, QD
     Route: 064
     Dates: end: 20120725
  2. LOPINAVIR W/RITONAVIR [Suspect]
     Indication: HIV INFECTION
     Dosage: 4 DF, QD
     Route: 064

REACTIONS (1)
  - Gastroschisis [Unknown]
